FAERS Safety Report 12831404 (Version 2)
Quarter: 2016Q4

REPORT INFORMATION
  Report Type: Spontaneous
  Country: US (occurrence: US)
  Receive Date: 20161008
  Receipt Date: 20161008
  Transmission Date: 20170207
  Serious: Yes (Hospitalization, Other)
  Sender: FDA-Public Use
  Company Number: US-AMGEN-USASP2016136025

PATIENT

DRUGS (5)
  1. CYCLOPHOSPHAMIDE. [Concomitant]
     Active Substance: CYCLOPHOSPHAMIDE
  2. DOCETAXEL. [Concomitant]
     Active Substance: DOCETAXEL
  3. DOXORUBICIN [Concomitant]
     Active Substance: DOXORUBICIN
  4. ZOMETA [Concomitant]
     Active Substance: ZOLEDRONIC ACID
  5. XGEVA [Suspect]
     Active Substance: DENOSUMAB
     Indication: METASTASES TO BONE
     Dosage: UNK UNK, QMO
     Route: 065
     Dates: start: 2009

REACTIONS (10)
  - Vomiting [Unknown]
  - Metastases to central nervous system [Not Recovered/Not Resolved]
  - Metastases to pituitary gland [Not Recovered/Not Resolved]
  - Balance disorder [Unknown]
  - Wrist fracture [Unknown]
  - Malignant neoplasm progression [Not Recovered/Not Resolved]
  - Impaired quality of life [Unknown]
  - Metastases to liver [Unknown]
  - Hospitalisation [Unknown]
  - Abdominal pain [Unknown]

NARRATIVE: CASE EVENT DATE: 2015
